FAERS Safety Report 19603382 (Version 3)
Quarter: 2021Q3

REPORT INFORMATION
  Report Type: Report from Study
  Country: BR (occurrence: BR)
  Receive Date: 20210723
  Receipt Date: 20210825
  Transmission Date: 20211014
  Serious: Yes (Death, Hospitalization)
  Sender: FDA-Public Use
  Company Number: BR-INCYTE CORPORATION-2021IN006632

PATIENT

DRUGS (3)
  1. GLIFAGE [Concomitant]
     Active Substance: METFORMIN HYDROCHLORIDE
     Indication: DIABETES MELLITUS
     Dosage: UNK
     Route: 048
  2. JAKAVI [Suspect]
     Active Substance: RUXOLITINIB
     Dosage: 5 MG, 8QD (8X A DAY, STARTED 3 YEARS AGO)
     Route: 048
  3. JAKAVI [Suspect]
     Active Substance: RUXOLITINIB
     Indication: MYELOFIBROSIS
     Dosage: 5 MG, DAILY
     Route: 048
     Dates: start: 20170628

REACTIONS (12)
  - Wound [Recovered/Resolved]
  - Cellulitis [Not Recovered/Not Resolved]
  - Acute myeloid leukaemia [Fatal]
  - Peripheral vascular disorder [Not Recovered/Not Resolved]
  - Haematocrit decreased [Unknown]
  - Hypertension [Fatal]
  - Extra dose administered [Unknown]
  - Platelet count decreased [Unknown]
  - Primary myelofibrosis [Fatal]
  - Septic shock [Fatal]
  - Diabetes mellitus [Fatal]
  - Sepsis [Fatal]

NARRATIVE: CASE EVENT DATE: 20210101
